FAERS Safety Report 8314199-8 (Version None)
Quarter: 2012Q2

REPORT INFORMATION
  Report Type: 
  Country: None (occurrence: None)
  Receive Date: 20120426
  Receipt Date: 20120424
  Transmission Date: 20120825
  Serious: Yes (Death, Other)
  Sender: FDA-Public Use
  Company Number: PHEH2012US007481

PATIENT
  Sex: Female

DRUGS (3)
  1. AFINITOR [Suspect]
     Indication: WALDENSTROM'S MACROGLOBULINAEMIA
     Dosage: 10 MG, QD
     Route: 048
     Dates: start: 20110513, end: 20110701
  2. AFINITOR [Suspect]
     Indication: NON-HODGKIN'S LYMPHOMA
     Dosage: 05 MG, QD
     Route: 048
  3. PHENOTHIAZINE [Concomitant]

REACTIONS (4)
  - NEOPLASM MALIGNANT [None]
  - NEOPLASM PROGRESSION [None]
  - DRUG INTOLERANCE [None]
  - ONCOLOGIC COMPLICATION [None]
